FAERS Safety Report 15604804 (Version 1)
Quarter: 2018Q4

REPORT INFORMATION
  Report Type: Spontaneous
  Country: US (occurrence: US)
  Receive Date: 20181106
  Receipt Date: 20181106
  Transmission Date: 20190205
  Serious: No
  Sender: FDA-Public Use
  Company Number: None

PATIENT
  Age: 84 Year
  Sex: Female

DRUGS (1)
  1. IBRANCE [Suspect]
     Active Substance: PALBOCICLIB
     Dates: start: 201803

REACTIONS (5)
  - Conversion disorder [None]
  - Syncope [None]
  - Asthenia [None]
  - Fatigue [None]
  - Stress [None]

NARRATIVE: CASE EVENT DATE: 20181102
